FAERS Safety Report 15004074 (Version 1)
Quarter: 2018Q2

REPORT INFORMATION
  Report Type: Spontaneous
  Country: US (occurrence: US)
  Receive Date: 20180524
  Receipt Date: 20180524
  Transmission Date: 20180711
  Serious: Yes (Hospitalization)
  Sender: FDA-Public Use
  Company Number: None

PATIENT
  Age: 77 Year
  Sex: Male

DRUGS (15)
  1. TRAZODONE [Concomitant]
     Active Substance: TRAZODONE HYDROCHLORIDE
  2. COLLAGENASE SANTYL [Concomitant]
     Active Substance: COLLAGENASE CLOSTRIDIUM HISTOLYTICUM
  3. CALCIUM [Concomitant]
     Active Substance: CALCIUM
  4. SIMVASTATIN. [Concomitant]
     Active Substance: SIMVASTATIN
  5. ALENDRONATE [Concomitant]
     Active Substance: ALENDRONATE SODIUM
  6. OMEPRAZOLE. [Concomitant]
     Active Substance: OMEPRAZOLE
  7. LEVOTHYROXIN [Concomitant]
     Active Substance: LEVOTHYROXINE
  8. TRAMADOL. [Concomitant]
     Active Substance: TRAMADOL
  9. METOPROL TAR [Concomitant]
  10. LORAZEPAM. [Concomitant]
     Active Substance: LORAZEPAM
  11. PREDNISONE. [Concomitant]
     Active Substance: PREDNISONE
  12. VENTOLIN HFA AER [Concomitant]
  13. URSODIOL. [Concomitant]
     Active Substance: URSODIOL
  14. OCALIVA [Suspect]
     Active Substance: OBETICHOLIC ACID
     Indication: PRIMARY BILIARY CHOLANGITIS
     Route: 048
     Dates: start: 20170721
  15. PROAIR HFA AER [Concomitant]

REACTIONS (3)
  - Dehydration [None]
  - Malaise [None]
  - Pneumonia [None]

NARRATIVE: CASE EVENT DATE: 20180513
